FAERS Safety Report 23233621 (Version 1)
Quarter: 2023Q4

REPORT INFORMATION
  Report Type: Spontaneous
  Country: CN (occurrence: CN)
  Receive Date: 20231128
  Receipt Date: 20231128
  Transmission Date: 20240109
  Serious: Yes (Hospitalization, Other)
  Sender: FDA-Public Use
  Company Number: None

PATIENT
  Age: 50 Year
  Sex: Female
  Weight: 50 kg

DRUGS (4)
  1. CYCLOPHOSPHAMIDE [Suspect]
     Active Substance: CYCLOPHOSPHAMIDE
     Indication: Breast cancer female
     Dosage: 0.8 G, ONCE, DILUTED WITH 100 ML OF 0.9% SODIUM CHLORIDE, SECOND ADJUVANT CHEMOTHERAPY
     Route: 041
     Dates: start: 20231030, end: 20231030
  2. SODIUM CHLORIDE [Suspect]
     Active Substance: SODIUM CHLORIDE
     Indication: Medication dilution
     Dosage: 100 ML, ONCE, USED TO DILUTE 0.8 G OF CYCLOPHOSPHAMIDE, SECOND ADJUVANT CHEMOTHERAPY, STRENGTH: 0.9%
     Route: 041
     Dates: start: 20231030, end: 20231030
  3. DEXTROSE [Suspect]
     Active Substance: DEXTROSE\DEXTROSE MONOHYDRATE
     Indication: Medication dilution
     Dosage: 100 ML, ONCE, USED TO DILUTE 60 MG OF PIRARUBICIN, SECOND ADJUVANT CHEMOTHERAPY, STRENGTH: 5%, DOSAG
     Route: 041
     Dates: start: 20231030, end: 20231030
  4. PIRARUBICIN HYDROCHLORIDE [Suspect]
     Active Substance: PIRARUBICIN HYDROCHLORIDE
     Indication: Breast cancer female
     Dosage: 60 MG, ONCE, DILUTED WITH 100 ML OF 5% OF GLUCOSE, SECOND ADJUVANT CHEMOTHERAPY
     Route: 041
     Dates: start: 20231030, end: 20231030

REACTIONS (7)
  - Myelosuppression [Recovering/Resolving]
  - White blood cell count decreased [Recovering/Resolving]
  - Lymphocyte count decreased [Recovering/Resolving]
  - Neutrophil count decreased [Recovering/Resolving]
  - Red blood cell count decreased [Recovering/Resolving]
  - Haemoglobin decreased [Recovering/Resolving]
  - Platelet count decreased [Recovering/Resolving]

NARRATIVE: CASE EVENT DATE: 20231103
